FAERS Safety Report 7476356-2 (Version None)
Quarter: 2011Q2

REPORT INFORMATION
  Report Type: 
  Country: None (occurrence: None)
  Receive Date: 20110512
  Receipt Date: 20110503
  Transmission Date: 20111010
  Serious: Yes (Hospitalization)
  Sender: FDA-Public Use
  Company Number: A0900258A

PATIENT
  Age: 52 Year
  Sex: Male
  Weight: 153.6 kg

DRUGS (2)
  1. VYTORIN [Concomitant]
  2. AVANDIA [Suspect]
     Dosage: 8MG PER DAY
     Route: 048
     Dates: end: 20090601

REACTIONS (4)
  - MYOCARDIAL INFARCTION [None]
  - MACULAR OEDEMA [None]
  - CEREBROVASCULAR ACCIDENT [None]
  - CORONARY ARTERY DISEASE [None]
